FAERS Safety Report 8272081-9 (Version None)
Quarter: 2012Q2

REPORT INFORMATION
  Report Type: 
  Country: None (occurrence: None)
  Receive Date: 20120410
  Receipt Date: 20120320
  Transmission Date: 20120825
  Serious: No
  Sender: FDA-Public Use
  Company Number: US-ROXANE LABORATORIES, INC.-2012-RO-00581RO

PATIENT
  Sex: Male

DRUGS (2)
  1. OPANA ER [Suspect]
     Indication: BACK PAIN
     Dosage: 40 MG
     Route: 048
  2. OXYMORPHONE HYDROCHLORIDE [Suspect]
     Indication: BACK PAIN
     Dosage: 50 MG
     Route: 048

REACTIONS (1)
  - DRUG INEFFECTIVE [None]
